FAERS Safety Report 18222144 (Version 1)
Quarter: 2020Q3

REPORT INFORMATION
  Report Type: Spontaneous
  Country: US (occurrence: US)
  Receive Date: 20200902
  Receipt Date: 20200902
  Transmission Date: 20201103
  Serious: No
  Sender: FDA-Public Use
  Company Number: US-ASTRAZENECA-2020SF01725

PATIENT
  Age: 90 Year
  Sex: Female

DRUGS (5)
  1. METOPROLOL TARTRATE. [Suspect]
     Active Substance: METOPROLOL TARTRATE
     Route: 065
  2. TORSEMIDE. [Concomitant]
     Active Substance: TORSEMIDE
  3. PEPCID [Concomitant]
     Active Substance: FAMOTIDINE
  4. IMBRUVICA [Suspect]
     Active Substance: IBRUTINIB
     Indication: CHRONIC LYMPHOCYTIC LEUKAEMIA
     Dosage: 420.0MG UNKNOWN
     Route: 048
     Dates: start: 20181226, end: 202006
  5. CALQUENCE [Suspect]
     Active Substance: ACALABRUTINIB
     Route: 048

REACTIONS (10)
  - Nausea [Unknown]
  - Diarrhoea [Unknown]
  - Cardiac disorder [Unknown]
  - Fatigue [Recovering/Resolving]
  - Neck pain [Unknown]
  - Epistaxis [Unknown]
  - Abnormal dreams [Unknown]
  - Syncope [Unknown]
  - Myalgia [Unknown]
  - Malaise [Unknown]

NARRATIVE: CASE EVENT DATE: 2018
